FAERS Safety Report 7401033-3 (Version None)
Quarter: 2011Q2

REPORT INFORMATION
  Report Type: 
  Country: None (occurrence: None)
  Receive Date: 20110407
  Receipt Date: 20110404
  Transmission Date: 20111010
  Serious: Yes (Hospitalization, Other)
  Sender: FDA-Public Use
  Company Number: HU-ABBOTT-11P-076-0716188-00

PATIENT
  Sex: Female
  Weight: 80 kg

DRUGS (3)
  1. LEFLUNOMIDE [Concomitant]
     Indication: RHEUMATOID ARTHRITIS
     Route: 048
     Dates: start: 20100101
  2. HUMIRA [Suspect]
     Indication: RHEUMATOID ARTHRITIS
     Route: 058
     Dates: start: 20110207, end: 20110317
  3. METHOTREXATE [Concomitant]
     Indication: RHEUMATOID ARTHRITIS
     Route: 048
     Dates: start: 20100101

REACTIONS (7)
  - HEADACHE [None]
  - COMMUNICATION DISORDER [None]
  - CONVULSION [None]
  - PYREXIA [None]
  - VIRAL INFECTION [None]
  - CONFUSIONAL STATE [None]
  - SYNCOPE [None]
